FAERS Safety Report 6322981-1 (Version None)
Quarter: 2009Q3

REPORT INFORMATION
  Report Type: 
  Country: None (occurrence: None)
  Receive Date: 20090824
  Receipt Date: 20090313
  Transmission Date: 20100115
  Serious: No
  Sender: FDA-Public Use
  Company Number: US-ABBOTT-09P-163-0562701-00

PATIENT
  Sex: Male

DRUGS (3)
  1. NIASPAN [Suspect]
     Indication: BLOOD TRIGLYCERIDES INCREASED
     Dates: start: 20090201
  2. KLONOPIN [Concomitant]
     Indication: DRUG USE FOR UNKNOWN INDICATION
  3. LITHIUM CARBONATE [Concomitant]
     Indication: DRUG USE FOR UNKNOWN INDICATION

REACTIONS (1)
  - PAIN [None]
